FAERS Safety Report 22023441 (Version 2)
Quarter: 2023Q1

REPORT INFORMATION
  Report Type: Spontaneous
  Country: IT (occurrence: IT)
  Receive Date: 20230223
  Receipt Date: 20230228
  Transmission Date: 20230417
  Serious: Yes (Death, Other)
  Sender: FDA-Public Use
  Company Number: IT-CELLTRION INC.-2023IT003798

PATIENT

DRUGS (8)
  1. TRASTUZUMAB [Suspect]
     Active Substance: TRASTUZUMAB
     Indication: Adenocarcinoma gastric
     Dosage: 6 MG/M2, SIX CYCLES
  2. TRASTUZUMAB [Suspect]
     Active Substance: TRASTUZUMAB
     Indication: Metastases to pituitary gland
  3. CISPLATIN [Suspect]
     Active Substance: CISPLATIN
     Indication: Adenocarcinoma gastric
     Dosage: 115 MG, SIX CYCLES
  4. CISPLATIN [Suspect]
     Active Substance: CISPLATIN
     Indication: Metastases to pituitary gland
  5. FLUOROURACIL [Concomitant]
     Active Substance: FLUOROURACIL
     Indication: Adenocarcinoma gastric
     Dosage: 4000 MG/M2
  6. FLUOROURACIL [Concomitant]
     Active Substance: FLUOROURACIL
     Indication: Metastases to pituitary gland
  7. CARBOPLATIN [Concomitant]
     Active Substance: CARBOPLATIN
     Indication: Adenocarcinoma gastric
     Dosage: 400 MG, LAST THREE CYCLES AFTER THE NEPHRECTOMY
  8. CARBOPLATIN [Concomitant]
     Active Substance: CARBOPLATIN
     Indication: Metastases to pituitary gland

REACTIONS (3)
  - Adenocarcinoma gastric [Fatal]
  - Metastases to meninges [Fatal]
  - Disease progression [Fatal]
